FAERS Safety Report 7385306-9 (Version None)
Quarter: 2011Q1

REPORT INFORMATION
  Report Type: 
  Country: None (occurrence: None)
  Receive Date: 20110330
  Receipt Date: 20100611
  Transmission Date: 20110831
  Serious: No
  Sender: FDA-Public Use
  Company Number: US-MYLANLABS-2010S1010048

PATIENT

DRUGS (3)
  1. EMSAM [Suspect]
     Route: 062
  2. OTHER RESPIRATORY SYSTEM PRODUCTS [Suspect]
     Route: 055
  3. LEVOTHYROXINE SODIUM [Concomitant]

REACTIONS (2)
  - DRUG INTERACTION [None]
  - BLOOD PRESSURE INCREASED [None]
